FAERS Safety Report 8961870 (Version 1)
Quarter: 2012Q4

REPORT INFORMATION
  Report Type: 
  Country: GB (occurrence: GB)
  Receive Date: 20121212
  Receipt Date: 20121212
  Transmission Date: 20130627
  Serious: Yes (Other)
  Sender: FDA-Public Use
  Company Number: PHHY2012GB114140

PATIENT
  Age: 44 Year

DRUGS (6)
  1. TACROLIMUS [Suspect]
     Dosage: 1 mg, Q72H
  2. TACROLIMUS [Interacting]
     Dosage: 2 mg, per day
  3. TACROLIMUS [Interacting]
     Dosage: 6 mg, per day
  4. RITONAVIR [Interacting]
     Indication: HIV INFECTION
  5. DARUNAVIR [Interacting]
     Indication: HIV INFECTION
  6. MARAVIROC [Concomitant]
     Indication: HIV INFECTION

REACTIONS (4)
  - Toxicity to various agents [Unknown]
  - Liver transplant rejection [Unknown]
  - Immunosuppressant drug level decreased [Recovered/Resolved]
  - Drug interaction [Unknown]
